FAERS Safety Report 14526365 (Version 7)
Quarter: 2019Q3

REPORT INFORMATION
  Report Type: Spontaneous
  Country: AT (occurrence: AT)
  Receive Date: 20180213
  Receipt Date: 20190708
  Transmission Date: 20191004
  Serious: Yes (Hospitalization)
  Sender: FDA-Public Use
  Company Number: AT-CELGENEUS-AUT-20180200116

PATIENT
  Age: 88 Year
  Sex: Male
  Weight: 78 kg

DRUGS (25)
  1. VENETOCLAX. [Concomitant]
     Active Substance: VENETOCLAX
     Indication: ACUTE MYELOID LEUKAEMIA
     Route: 065
  2. PANTOLOC [Concomitant]
     Active Substance: PANTOPRAZOLE SODIUM
     Indication: GASTRITIS PROPHYLAXIS
     Dosage: 40 MILLIGRAM
     Route: 048
     Dates: start: 2012
  3. DOMINAL (PROTHIPENDYL HYDROCHLORIDE) [Concomitant]
     Active Substance: PROTHIPENDYL HYDROCHLORIDE
     Indication: SLEEP APNOEA SYNDROME
     Dosage: 40 MILLIGRAM
     Route: 048
     Dates: start: 2015
  4. FOLSAN [Concomitant]
     Active Substance: FOLIC ACID
     Indication: BLOOD FOLATE DECREASED
     Dosage: 5 MILLIGRAM
     Route: 048
     Dates: start: 20171206
  5. ELOMEL [Concomitant]
     Indication: PROPHYLAXIS
  6. AGLANDIN [Concomitant]
     Indication: BENIGN PROSTATIC HYPERPLASIA
     Dosage: 0.4 MILLIGRAM
     Route: 048
     Dates: start: 2007
  7. TEMESTA [Concomitant]
     Indication: SLEEP APNOEA SYNDROME
     Route: 048
     Dates: start: 20180126
  8. RATIOGRASTIM [Concomitant]
     Active Substance: FILGRASTIM
     Indication: NEUTROPENIA
  9. AZACITIDINE. [Suspect]
     Active Substance: AZACITIDINE
     Indication: ACUTE MYELOID LEUKAEMIA
     Dosage: 75 MILLIGRAM/SQ. METER
     Route: 058
     Dates: start: 20180110
  10. MEXALEN [Concomitant]
     Active Substance: ACETAMINOPHEN
     Indication: SPINAL PAIN
     Dosage: 1500 MILLIGRAM
     Route: 048
     Dates: start: 20180112, end: 20180124
  11. OLEOVIT [Concomitant]
     Indication: VITAMIN D DECREASED
     Dosage: 30 DROPS
     Route: 048
     Dates: start: 20171206
  12. ELOMEL [Concomitant]
     Indication: FEBRILE NEUTROPENIA
  13. LASIX [Concomitant]
     Active Substance: FUROSEMIDE
     Indication: DYSPNOEA
     Dosage: 40 MILLIGRAM
     Route: 048
     Dates: start: 2014, end: 20180126
  14. XANOR [Concomitant]
     Active Substance: ALPRAZOLAM
     Indication: SLEEP APNOEA SYNDROME
     Dosage: .5 MILLIGRAM
     Route: 048
     Dates: start: 2015
  15. ALLOPURINOL. [Concomitant]
     Active Substance: ALLOPURINOL
     Indication: PROPHYLAXIS
     Dosage: 150 MILLIGRAM
     Route: 048
     Dates: start: 2012
  16. ALLOPURINOL. [Concomitant]
     Active Substance: ALLOPURINOL
     Indication: HYPERURICAEMIA
     Route: 048
     Dates: start: 20180109, end: 20180112
  17. ANDROFIN [Concomitant]
     Indication: BENIGN PROSTATIC HYPERPLASIA
     Dosage: 5 MILLIGRAM
     Route: 048
     Dates: start: 2007
  18. DEANXIT [Concomitant]
     Active Substance: FLUPENTIXOL DIHYDROCHLORIDE\MELITRACEN HYDROCHLORIDE
     Indication: DEPRESSION
     Dosage: 10 MILLIGRAM
     Route: 048
     Dates: start: 2015
  19. MOLAXOLE [Concomitant]
     Active Substance: POLYETHYLENE GLYCOL 3350\POTASSIUM CHLORIDE\SODIUM BICARBONATE\SODIUM CHLORIDE
     Indication: CONSTIPATION
     Dosage: 13 GRAM
     Route: 048
     Dates: start: 2013
  20. FORTUM [Concomitant]
     Active Substance: CEFTAZIDIME
     Indication: INFECTION
     Dosage: 2 GRAM
     Route: 041
     Dates: start: 20180113, end: 20180121
  21. ELOMEL [Concomitant]
     Indication: PHLEBITIS
     Route: 065
     Dates: start: 20180108, end: 20180112
  22. SPIROBENE [Concomitant]
     Active Substance: SPIRONOLACTONE
     Indication: MITRAL VALVE INCOMPETENCE
     Dosage: 25 MILLIGRAM
     Route: 048
     Dates: start: 2014, end: 20180126
  23. TAZONAM [Concomitant]
     Active Substance: TAZOBACTAM
     Indication: INFECTION
     Dosage: 13.5 MILLIGRAM
     Route: 041
     Dates: start: 20180112
  24. RATIOGRASTIM [Concomitant]
     Active Substance: FILGRASTIM
     Indication: FEBRILE NEUTROPENIA
     Dosage: 30 MIO
     Route: 058
     Dates: start: 20180112, end: 20180124
  25. RATIOGRASTIM [Concomitant]
     Active Substance: FILGRASTIM
     Indication: INFECTION

REACTIONS (1)
  - Pneumonia [Recovered/Resolved]

NARRATIVE: CASE EVENT DATE: 20180126
